FAERS Safety Report 23118371 (Version 1)
Quarter: 2023Q4

REPORT INFORMATION
  Report Type: Other
  Country: US (occurrence: None)
  Receive Date: 20231028
  Receipt Date: 20231028
  Transmission Date: 20240110
  Serious: Yes (Hospitalization)
  Sender: FDA-Public Use
  Company Number: US-ROCHE-3441233

PATIENT
  Age: 77 Year
  Sex: Female

DRUGS (1)
  1. ESBRIET [Suspect]
     Active Substance: PIRFENIDONE
     Indication: Idiopathic pulmonary fibrosis
     Dosage: TAKE 3 TABLET(S) BY MOUTH IN THE MORNING AND TAKE 3 TABLET(S) BY MOUTH AT NOON AND TAKE 3 TABLET(S)
     Route: 048

REACTIONS (2)
  - Abscess [Unknown]
  - Aphonia [Unknown]
